FAERS Safety Report 5696225-8 (Version None)
Quarter: 2008Q2

REPORT INFORMATION
  Report Type: 
  Country: None (occurrence: None)
  Receive Date: 20080407
  Receipt Date: 20080325
  Transmission Date: 20081010
  Serious: Yes (Other)
  Sender: FDA-Public Use
  Company Number: US-ELI_LILLY_AND_COMPANY-US200802005631

PATIENT
  Age: 74 Year
  Sex: Female

DRUGS (2)
  1. FORTEO [Suspect]
     Indication: OSTEOPOROSIS
     Dosage: 20 UG, UNK
     Dates: start: 20050401, end: 20061001
  2. ACTONEL [Concomitant]
     Dates: start: 20060101

REACTIONS (8)
  - BONE DENSITY DECREASED [None]
  - DIZZINESS [None]
  - FACIAL BONES FRACTURE [None]
  - FALL [None]
  - INNER EAR DISORDER [None]
  - LOSS OF CONSCIOUSNESS [None]
  - NAUSEA [None]
  - PATELLA FRACTURE [None]
